FAERS Safety Report 7620126-9 (Version None)
Quarter: 2011Q3

REPORT INFORMATION
  Report Type: 
  Country: None (occurrence: None)
  Receive Date: 20110719
  Receipt Date: 20110718
  Transmission Date: 20111222
  Serious: Yes (Hospitalization)
  Sender: FDA-Public Use
  Company Number: IT-SANOFI-AVENTIS-2011SA035236

PATIENT
  Age: 87 Year
  Sex: Female

DRUGS (7)
  1. NITROGLYCERIN [Concomitant]
     Route: 065
  2. LANOXIN [Concomitant]
     Route: 048
  3. ALLOPURINOL [Concomitant]
     Route: 048
  4. CALCIUM CARBONATE [Concomitant]
     Dosage: DOSE:1 UNIT(S)
     Route: 048
  5. LASIX [Suspect]
     Route: 048
     Dates: start: 20110510, end: 20110519
  6. ASPIRIN [Concomitant]
     Dosage: DOSE:1 UNIT(S)
     Route: 048
  7. LANSOPRAZOLE [Concomitant]
     Route: 048

REACTIONS (5)
  - ACUTE RESPIRATORY FAILURE [None]
  - RENAL FAILURE ACUTE [None]
  - DEHYDRATION [None]
  - MALAISE [None]
  - DYSPNOEA [None]
